FAERS Safety Report 8614369-5 (Version None)
Quarter: 2012Q3

REPORT INFORMATION
  Report Type: 
  Country: None (occurrence: None)
  Receive Date: 20120823
  Receipt Date: 20120816
  Transmission Date: 20120928
  Serious: Yes (Other)
  Sender: FDA-Public Use
  Company Number: IN-COVIDIEN/TYCO HEALTHCARE/MALLINCKRODT-T201203202

PATIENT
  Age: 50 Year
  Sex: Female

DRUGS (3)
  1. MD-GASTROVIEW [Suspect]
     Indication: SURGERY
     Dosage: UNK
     Route: 037
  2. BETA BLOCKING AGENTS [Concomitant]
     Indication: HYPERTENSION
     Dosage: UNK
  3. HYPOGLYCEMICS [Concomitant]
     Indication: DIABETES MELLITUS
     Dosage: UNK
     Route: 048

REACTIONS (2)
  - DRUG ADMINISTRATION ERROR [None]
  - CONVULSION [None]
